FAERS Safety Report 17847649 (Version 1)
Quarter: 2020Q2

REPORT INFORMATION
  Report Type: Spontaneous
  Country: US (occurrence: US)
  Receive Date: 20200601
  Receipt Date: 20200601
  Transmission Date: 20200714
  Serious: Yes (Other)
  Sender: FDA-Public Use
  Company Number: US-BAYER-2020-094297

PATIENT
  Age: 67 Year
  Sex: Female

DRUGS (3)
  1. ASPIRIN [ACETYLSALICYLIC ACID] [Interacting]
     Active Substance: ASPIRIN
     Indication: PAIN
     Dosage: UNK
     Route: 048
  2. ALKA-SELTZER PLUS COLD SPARKLING ORIGINAL [Suspect]
     Active Substance: ASPIRIN\CHLORPHENIRAMINE MALEATE\PHENYLEPHRINE BITARTRATE
     Indication: HEADACHE
     Dosage: UNK
     Route: 048
     Dates: start: 20200520, end: 20200520
  3. ALKA-SELTZER PLUS NOS [Interacting]
     Active Substance: ACETAMINOPHEN\ASPIRIN\CHLORPHENIRAMINE MALEATE\DEXTROMETHORPHAN HYDROBROMIDE\DIPHENHYDRAMINE HYDROCHLORIDE\DOXYLAMINE SUCCINATE\PHENYLEPHRINE BITARTRATE\PHENYLEPHRINE HYDROCHLORIDE
     Indication: HEADACHE
     Route: 048

REACTIONS (15)
  - Abdominal discomfort [Unknown]
  - Abdominal pain lower [Unknown]
  - Oropharyngeal pain [Unknown]
  - Pelvic pain [Unknown]
  - Cardiac discomfort [Unknown]
  - Dry mouth [Unknown]
  - Abdominal pain upper [Not Recovered/Not Resolved]
  - Dyspepsia [Unknown]
  - Abdominal pain upper [Unknown]
  - Dyspnoea [Unknown]
  - Diarrhoea [Unknown]
  - Gastrointestinal haemorrhage [Unknown]
  - Insomnia [Unknown]
  - Abdominal rigidity [Unknown]
  - Burning sensation [Unknown]

NARRATIVE: CASE EVENT DATE: 20200520
